FAERS Safety Report 9469502 (Version 1)
Quarter: 2013Q3

REPORT INFORMATION
  Report Type: Spontaneous
  Country: US (occurrence: US)
  Receive Date: 20130822
  Receipt Date: 20130822
  Transmission Date: 20140515
  Serious: No
  Sender: FDA-Public Use
  Company Number: US-BIOGENIDEC-2013BI075681

PATIENT
  Age: 46 Year
  Sex: Female

DRUGS (1)
  1. AVONEX [Suspect]
     Indication: MULTIPLE SCLEROSIS
     Route: 030
     Dates: start: 20090930

REACTIONS (6)
  - Atrophy [Unknown]
  - Memory impairment [Unknown]
  - Contusion [Unknown]
  - Fall [Recovered/Resolved]
  - Pain [Unknown]
  - Fatigue [Unknown]
